FAERS Safety Report 13212414 (Version 3)
Quarter: 2017Q1

REPORT INFORMATION
  Report Type: Spontaneous
  Country: GB (occurrence: GB)
  Receive Date: 20170210
  Receipt Date: 20170214
  Transmission Date: 20170428
  Serious: Yes (Other)
  Sender: FDA-Public Use
  Company Number: GB-PFIZER INC-2017057969

PATIENT
  Age: 50 Year
  Sex: Female
  Weight: 106.13 kg

DRUGS (2)
  1. ANADIN ULTRA [Suspect]
     Active Substance: IBUPROFEN
     Indication: JOINT DISLOCATION
     Dosage: 200 MG, UNK (LIQUID CAPSURE)
     Route: 048
     Dates: start: 20170126, end: 20170126
  2. TRAMADOL. [Concomitant]
     Active Substance: TRAMADOL
     Dosage: UNK

REACTIONS (5)
  - Lip swelling [Recovering/Resolving]
  - Product use issue [Recovered/Resolved]
  - Pharyngeal oedema [Recovering/Resolving]
  - Dyspnoea [Unknown]
  - Product substitution issue [Unknown]

NARRATIVE: CASE EVENT DATE: 20170126
